FAERS Safety Report 14972625 (Version 1)
Quarter: 2018Q2

REPORT INFORMATION
  Report Type: Spontaneous
  Country: US (occurrence: US)
  Receive Date: 20180605
  Receipt Date: 20180605
  Transmission Date: 20180711
  Serious: No
  Sender: FDA-Public Use
  Company Number: US-PFIZER INC-2018227630

PATIENT
  Sex: Male

DRUGS (1)
  1. SUNITINIB MALATE. [Suspect]
     Active Substance: SUNITINIB MALATE
     Dosage: 50 MG, CYCLIC (50 MG/DAY 4/2)

REACTIONS (4)
  - Stomatitis [Unknown]
  - Neoplasm progression [Unknown]
  - Hypertension [Unknown]
  - Hypothyroidism [Unknown]
